FAERS Safety Report 12721294 (Version 2)
Quarter: 2016Q4

REPORT INFORMATION
  Report Type: Spontaneous
  Country: SE (occurrence: SE)
  Receive Date: 20160907
  Receipt Date: 20161019
  Transmission Date: 20170207
  Serious: Yes (Other)
  Sender: FDA-Public Use
  Company Number: SE-TEVA-688128ACC

PATIENT
  Age: 54 Year
  Sex: Female

DRUGS (11)
  1. METOPROLOL. [Suspect]
     Active Substance: METOPROLOL
     Indication: HYPERTENSION
  2. AMLODIPINE [Suspect]
     Active Substance: AMLODIPINE BESYLATE
     Indication: HYPERTENSION
     Dates: start: 2013, end: 2013
  3. HYDROCHLOROTHIAZIDE. [Suspect]
     Active Substance: HYDROCHLOROTHIAZIDE
     Dates: start: 201302
  4. D-VITAMIN SOM KOSTTILLSKOTT [Concomitant]
     Dates: start: 201301
  5. SIMVASTATIN TEVA [Suspect]
     Active Substance: SIMVASTATIN
     Indication: LIPIDS INCREASED
     Dates: start: 201503, end: 201503
  6. FELODIPINE. [Suspect]
     Active Substance: FELODIPINE
     Indication: HYPERTENSION
     Dates: start: 201304, end: 201606
  7. ENALAPRIL KRKA [Suspect]
     Active Substance: ENALAPRIL MALEATE
     Indication: HYPERTENSION
  8. SPIRONOLAKTON PFIZER [Concomitant]
     Active Substance: SPIRONOLACTONE
     Dates: start: 201301
  9. ALLEGRA [Suspect]
     Active Substance: FEXOFENADINE HYDROCHLORIDE
     Indication: HYPERSENSITIVITY
     Dates: start: 2012, end: 201505
  10. OMEPRAZOLE. [Suspect]
     Active Substance: OMEPRAZOLE
     Dates: start: 2013, end: 2015
  11. LOSARTAN. [Suspect]
     Active Substance: LOSARTAN
     Indication: HYPERTENSION

REACTIONS (10)
  - Back pain [Unknown]
  - Chest pain [Unknown]
  - Fatigue [Recovered/Resolved]
  - Arthralgia [Recovered/Resolved]
  - Chest discomfort [Unknown]
  - Oropharyngeal pain [Recovered/Resolved]
  - Dry eye [Recovered/Resolved]
  - Sleep disorder [Recovered/Resolved]
  - Peripheral swelling [Unknown]
  - Pharyngeal oedema [Recovered/Resolved]

NARRATIVE: CASE EVENT DATE: 201503
